FAERS Safety Report 15437205 (Version 1)
Quarter: 2018Q3

REPORT INFORMATION
  Report Type: Report from Study
  Country: US (occurrence: US)
  Receive Date: 20180927
  Receipt Date: 20180927
  Transmission Date: 20181010
  Serious: No
  Sender: FDA-Public Use
  Company Number: US-CLOVIS ONCOLOGY-CLO-2018-001030

PATIENT
  Age: 60 Year
  Sex: Female

DRUGS (2)
  1. RUBRACA [Suspect]
     Active Substance: RUCAPARIB CAMSYLATE
     Dosage: 500 MG, BID
     Route: 048
     Dates: start: 20180911
  2. RUBRACA [Suspect]
     Active Substance: RUCAPARIB CAMSYLATE
     Indication: OVARIAN CANCER
     Dosage: 600 MG, BID
     Route: 048
     Dates: start: 20180801, end: 20180911

REACTIONS (17)
  - Vertigo [Recovered/Resolved]
  - Nausea [Recovered/Resolved]
  - Rash erythematous [Unknown]
  - Dysuria [Unknown]
  - Dizziness [Unknown]
  - Decreased appetite [Not Recovered/Not Resolved]
  - Rash pruritic [Recovering/Resolving]
  - Chills [Unknown]
  - Pollakiuria [Unknown]
  - Pruritus [Unknown]
  - White blood cell count decreased [Unknown]
  - Insomnia [Unknown]
  - Dysgeusia [Unknown]
  - Rash generalised [Recovering/Resolving]
  - Drug dose omission [Unknown]
  - Constipation [Unknown]
  - Fatigue [Recovering/Resolving]

NARRATIVE: CASE EVENT DATE: 2018
